FAERS Safety Report 4503728-8 (Version None)
Quarter: 2004Q4

REPORT INFORMATION
  Report Type: 
  Country: None (occurrence: None)
  Receive Date: 20040928
  Receipt Date: 20040610
  Transmission Date: 20050328
  Serious: No
  Sender: FDA-Public Use
  Company Number: 04P-163-0263659-00

PATIENT
  Age: 38 Year
  Sex: Female
  Weight: 67.1324 kg

DRUGS (6)
  1. HUMIRA [Suspect]
     Indication: RHEUMATOID ARTHRITIS
     Dosage: 40 MG, 1 IN 2 WK, SUBCUTANEOUS
     Route: 058
     Dates: start: 20040512, end: 20040610
  2. PREDNISONE [Concomitant]
  3. ALENDRONATE SODIUM [Concomitant]
  4. ALPRAZOLAM [Concomitant]
  5. VICODIN [Concomitant]
  6. CARISOPRODOL [Concomitant]

REACTIONS (6)
  - CONTUSION [None]
  - COUGH [None]
  - FALL [None]
  - PYREXIA [None]
  - TOOTH ABSCESS [None]
  - VOMITING [None]
